FAERS Safety Report 15292243 (Version 3)
Quarter: 2018Q3

REPORT INFORMATION
  Report Type: Spontaneous
  Country: FR (occurrence: FR)
  Receive Date: 20180818
  Receipt Date: 20180904
  Transmission Date: 20181010
  Serious: Yes (Hospitalization)
  Sender: FDA-Public Use
  Company Number: FR-AUROBINDO-AUR-APL-2018-041999

PATIENT
  Sex: Female
  Weight: 61 kg

DRUGS (11)
  1. CANDESARTAN TABLET [Suspect]
     Active Substance: CANDESARTAN
     Indication: HYPERTENSION
     Dosage: 4 MG, UNK
     Route: 048
     Dates: start: 20170421
  2. LAROXYL [Suspect]
     Active Substance: AMITRIPTYLINE HYDROCHLORIDE
     Indication: NEURALGIA
     Dosage: 50 MG, UNK
     Route: 048
     Dates: start: 20170421
  3. PARACETAMOL [Suspect]
     Active Substance: ACETAMINOPHEN
     Indication: TEMPORAL ARTERITIS
  4. SIRUKUMAB [Suspect]
     Active Substance: SIRUKUMAB
     Indication: TEMPORAL ARTERITIS
  5. PREDNISONE TABLET [Suspect]
     Active Substance: PREDNISONE
     Indication: TEMPORAL ARTERITIS
     Dosage: UNK
     Route: 065
  6. LAROXYL [Suspect]
     Active Substance: AMITRIPTYLINE HYDROCHLORIDE
     Indication: ANXIETY
     Dosage: UNK
     Route: 065
  7. SIRUKUMAB [Suspect]
     Active Substance: SIRUKUMAB
     Indication: TEMPORAL ARTERITIS
     Dosage: UNK ()
     Route: 065
     Dates: start: 20170421, end: 20170505
  8. LAROXYL [Suspect]
     Active Substance: AMITRIPTYLINE HYDROCHLORIDE
     Dosage: 50 MG, UNK
     Route: 048
     Dates: start: 20170421, end: 20170518
  9. PARACETAMOL [Suspect]
     Active Substance: ACETAMINOPHEN
     Indication: TEMPORAL ARTERITIS
     Dosage: 1 G, UNK
     Route: 048
     Dates: start: 2016
  10. TERBUTALINE [Suspect]
     Active Substance: TERBUTALINE
     Indication: ASTHMA
     Dosage: 1000 UNIT UNKOWN ()
     Route: 055
     Dates: start: 20170421
  11. ACETYLSALICYLIC ACID [Suspect]
     Active Substance: ASPIRIN
     Indication: PROPHYLAXIS
     Dosage: 1 G, UNK
     Route: 048
     Dates: start: 2017

REACTIONS (1)
  - Headache [Recovered/Resolved]

NARRATIVE: CASE EVENT DATE: 20170510
